FAERS Safety Report 6087115-X (Version None)
Quarter: 2009Q1

REPORT INFORMATION
  Report Type: 
  Country: None (occurrence: None)
  Receive Date: 20090223
  Receipt Date: 20090213
  Transmission Date: 20090719
  Serious: Yes (Hospitalization, Other)
  Sender: FDA-Public Use
  Company Number: US-ELI_LILLY_AND_COMPANY-US200902003546

PATIENT
  Age: 23 Year
  Sex: Female

DRUGS (3)
  1. HUMATROPE [Suspect]
     Dosage: 1 MG, DAILY (1/D)
     Dates: start: 20081111
  2. FOLIC ACID [Concomitant]
  3. BLOOD TRANSFUSION, AUXILIARY PRODUCTS [Concomitant]
     Indication: SICKLE CELL ANAEMIA

REACTIONS (4)
  - CEREBROVASCULAR ACCIDENT [None]
  - DIZZINESS [None]
  - DYSPNOEA [None]
  - HEADACHE [None]
